FAERS Safety Report 6386530-4 (Version None)
Quarter: 2009Q4

REPORT INFORMATION
  Report Type: 
  Country: None (occurrence: None)
  Receive Date: 20091002
  Receipt Date: 20090405
  Transmission Date: 20100525
  Serious: No
  Sender: FDA-Public Use
  Company Number: US-ASTRAZENECA-2009UW08631

PATIENT
  Age: 65 Year
  Sex: Female
  Weight: 97.5 kg

DRUGS (1)
  1. ARIMIDEX [Suspect]
     Indication: BREAST CANCER
     Route: 048
     Dates: start: 20090310

REACTIONS (6)
  - ARTHRALGIA [None]
  - FLUID RETENTION [None]
  - HEADACHE [None]
  - HOT FLUSH [None]
  - NAUSEA [None]
  - WEIGHT INCREASED [None]
